FAERS Safety Report 4622687-0 (Version None)
Quarter: 2005Q1

REPORT INFORMATION
  Report Type: 
  Country: None (occurrence: None)
  Receive Date: 20050329
  Receipt Date: 20050329
  Transmission Date: 20050727
  Serious: Yes (Life-Threatening, Hospitalization)
  Sender: FDA-Public Use
  Company Number: None

PATIENT
  Age: 73 Year
  Sex: Male
  Weight: 71.2147 kg

DRUGS (1)
  1. CARBAMAZEPINE [Suspect]
     Indication: CONVULSION
     Dosage: 1000 MG   BID   ORAL
     Route: 048
     Dates: start: 20021001, end: 20050328

REACTIONS (7)
  - ASTHENIA [None]
  - CONFUSIONAL STATE [None]
  - COORDINATION ABNORMAL [None]
  - DIZZINESS POSTURAL [None]
  - DRUG TOXICITY [None]
  - LETHARGY [None]
  - TREATMENT NONCOMPLIANCE [None]
